FAERS Safety Report 13573321 (Version 2)
Quarter: 2017Q2

REPORT INFORMATION
  Report Type: Spontaneous
  Country: CN (occurrence: CN)
  Receive Date: 20170523
  Receipt Date: 20170615
  Transmission Date: 20170830
  Serious: Yes (Other)
  Sender: FDA-Public Use
  Company Number: CN-PFIZER INC-2017220542

PATIENT
  Sex: Male
  Weight: 100 kg

DRUGS (3)
  1. LIPITOR [Suspect]
     Active Substance: ATORVASTATIN CALCIUM
     Dosage: 20 MG, UNK
     Route: 048
  2. AMIODARONE [Suspect]
     Active Substance: AMIODARONE
     Dosage: 0.8-1G DAILY
     Route: 058
  3. AMIODARONE [Suspect]
     Active Substance: AMIODARONE
     Dosage: 0.8-1G DAILY
     Route: 042

REACTIONS (1)
  - Muscle enzyme increased [Unknown]
